FAERS Safety Report 7979950-5 (Version None)
Quarter: 2011Q4

REPORT INFORMATION
  Report Type: 
  Country: None (occurrence: None)
  Receive Date: 20111214
  Receipt Date: 20111129
  Transmission Date: 20120403
  Serious: Yes (Death, Hospitalization, Other)
  Sender: FDA-Public Use
  Company Number: IL-ROCHE-1013640

PATIENT
  Sex: Female
  Weight: 65.5 kg

DRUGS (4)
  1. LANSONE [Concomitant]
     Indication: PROPHYLAXIS
  2. MIRCERA [Suspect]
     Indication: ANAEMIA
  3. PLAVIX [Concomitant]
     Indication: CATHETER PLACEMENT
  4. SIMVASTATIN [Concomitant]
     Indication: HYPERLIPIDAEMIA

REACTIONS (4)
  - MYOCARDIAL INFARCTION [None]
  - TRANSIENT ISCHAEMIC ATTACK [None]
  - CHEST PAIN [None]
  - COMA [None]
